FAERS Safety Report 9103874 (Version 1)
Quarter: 2013Q1

REPORT INFORMATION
  Report Type: Report from Study
  Country: US (occurrence: US)
  Receive Date: 20130219
  Receipt Date: 20130219
  Transmission Date: 20140127
  Serious: Yes (Hospitalization, Other)
  Sender: FDA-Public Use
  Company Number: US-BAYER-2013-019954

PATIENT
  Age: 54 Year
  Sex: Male
  Weight: 86.17 kg

DRUGS (6)
  1. BETASERON [Suspect]
     Indication: RELAPSING-REMITTING MULTIPLE SCLEROSIS
     Dosage: 8 MIU, QOD
     Route: 058
     Dates: start: 20070119, end: 20110628
  2. BETASERON [Suspect]
     Indication: RELAPSING-REMITTING MULTIPLE SCLEROSIS
     Dosage: 8 MIU, QOD
     Route: 058
     Dates: start: 20110728, end: 20121204
  3. BETASERON [Suspect]
     Indication: RELAPSING-REMITTING MULTIPLE SCLEROSIS
     Dosage: 8 MIU, QOD
     Route: 058
     Dates: start: 20130104
  4. CHOLESTEROL- AND TRIGLYCERIDE REDUCERS [Suspect]
     Indication: BLOOD CHOLESTEROL INCREASED
  5. NAPROSYN [Concomitant]
     Indication: ARTHRITIS
     Dosage: 500 MG, BID
  6. METFORMIN [Concomitant]
     Dosage: 1000 MG, BID

REACTIONS (10)
  - Injection site abscess [Recovered/Resolved]
  - Impaired healing [Recovered/Resolved]
  - Injection site rash [Not Recovered/Not Resolved]
  - Injection site induration [Recovered/Resolved]
  - Injection site scar [None]
  - Drug dose omission [Not Recovered/Not Resolved]
  - Hepatic enzyme increased [Recovered/Resolved]
  - Injection site infection [Recovered/Resolved]
  - Localised infection [Recovered/Resolved]
  - Staphylococcal infection [Recovered/Resolved]
